FAERS Safety Report 5662229-4 (Version None)
Quarter: 2008Q1

REPORT INFORMATION
  Report Type: 
  Country: None (occurrence: None)
  Receive Date: 20080312
  Receipt Date: 20080303
  Transmission Date: 20080703
  Serious: Yes (Other)
  Sender: FDA-Public Use
  Company Number: US-PFIZER INC-2007049099

PATIENT
  Sex: Male
  Weight: 96.2 kg

DRUGS (1)
  1. BEXTRA [Suspect]
     Route: 048
     Dates: start: 20040311, end: 20041111

REACTIONS (1)
  - MYOCARDIAL INFARCTION [None]
